FAERS Safety Report 9934857 (Version 2)
Quarter: 2014Q1

REPORT INFORMATION
  Report Type: Report from Study
  Country: US (occurrence: US)
  Receive Date: 20140228
  Receipt Date: 20140324
  Transmission Date: 20141002
  Serious: Yes (Hospitalization)
  Sender: FDA-Public Use
  Company Number: US-BRISTOL-MYERS SQUIBB COMPANY-20343810

PATIENT
  Age: 61 Year
  Sex: Male
  Weight: 100.2 kg

DRUGS (36)
  1. NIVOLUMAB [Suspect]
     Indication: METASTATIC MALIGNANT MELANOMA
     Dosage: 1 DF=4 TREATMENT PER 6 WEEK CYCLE
     Route: 042
     Dates: start: 20131105, end: 20131126
  2. IPILIMUMAB [Suspect]
     Indication: METASTATIC MALIGNANT MELANOMA
     Dosage: 1 DF= 2 TREATMENTS PER 6 WEEK CYCLE.
     Route: 042
     Dates: start: 20131105, end: 20131126
  3. BLINDED: PLACEBO [Suspect]
     Indication: METASTATIC MALIGNANT MELANOMA
     Route: 042
     Dates: start: 20131105, end: 20131126
  4. PREDNISONE [Concomitant]
     Dates: start: 20131220
  5. ASCORBIC ACID [Concomitant]
     Dates: start: 20140106
  6. CALCIUM CARBONATE [Concomitant]
     Dates: start: 20140106
  7. CHLORTHALIDONE [Concomitant]
     Dates: start: 20140106
  8. OSTEO BI-FLEX [Concomitant]
     Dates: start: 20140106
  9. LACTOBACILLUS ACIDOPHILUS [Concomitant]
     Dates: start: 20140106
  10. OMEGA 3 FATTY ACID [Concomitant]
     Dosage: OMEGA-3 POLYUNSATURATED FATTY ACID
     Dates: start: 20140106
  11. DEXTROSE 50% [Concomitant]
     Dates: start: 20140107
  12. HEPARIN [Concomitant]
  13. HYDROMORPHONE [Concomitant]
     Dates: start: 20140107
  14. INSULIN REGULAR [Concomitant]
     Dosage: INSULIN REGULAR DRIP
     Dates: start: 20140107
  15. METRONIDAZOLE [Concomitant]
     Dates: start: 20140107
  16. NALOXONE [Concomitant]
     Dates: start: 20140107
  17. LEVOFLOXACIN [Concomitant]
     Dates: start: 20140108
  18. METHYLPREDNISONE [Concomitant]
     Dates: start: 20140108
  19. PANTOPRAZOLE [Concomitant]
     Dates: start: 20140109
  20. VITAMIN A [Concomitant]
     Dates: start: 20140109
  21. NYSTATIN [Concomitant]
     Dates: start: 20140109
  22. DIPHENHYDRAMINE [Concomitant]
  23. MAALOX [Concomitant]
     Dates: start: 20140109
  24. LIDOCAINE [Concomitant]
     Dates: start: 20140109
  25. NORMAL SALINE [Concomitant]
  26. VANCOMYCIN [Concomitant]
  27. AZTREONAM [Concomitant]
  28. DOCUSATE [Concomitant]
  29. TAMSULOSIN [Concomitant]
  30. TRAZODONE HCL [Concomitant]
  31. MORPHINE [Concomitant]
  32. PROMETHAZINE [Concomitant]
  33. CITALOPRAM [Concomitant]
  34. GABAPENTIN [Concomitant]
  35. MAGNESIUM SULFATE [Concomitant]
  36. POLYETHYLENE GLYCOL [Concomitant]

REACTIONS (1)
  - Pneumonia [Recovering/Resolving]
